FAERS Safety Report 7452268-5 (Version None)
Quarter: 2011Q2

REPORT INFORMATION
  Report Type: 
  Country: None (occurrence: None)
  Receive Date: 20110502
  Receipt Date: 20100819
  Transmission Date: 20111010
  Serious: No
  Sender: FDA-Public Use
  Company Number: US-ASTRAZENECA-2010SE39109

PATIENT
  Age: 66 Year
  Sex: Female
  Weight: 66.2 kg

DRUGS (2)
  1. BENICAR [Concomitant]
  2. NEXIUM [Suspect]
     Indication: GASTROOESOPHAGEAL REFLUX DISEASE
     Route: 048
     Dates: start: 20090301

REACTIONS (3)
  - LARYNGEAL OEDEMA [None]
  - LOCALISED OEDEMA [None]
  - TONGUE OEDEMA [None]
